FAERS Safety Report 19775479 (Version 2)
Quarter: 2021Q3

REPORT INFORMATION
  Report Type: Report from Study
  Country: CA (occurrence: CA)
  Receive Date: 20210901
  Receipt Date: 20210903
  Transmission Date: 20211014
  Serious: Yes (Death, Hospitalization, Other)
  Sender: FDA-Public Use
  Company Number: NVSC2021CA190093

PATIENT
  Age: 63 Year
  Sex: Male
  Weight: 83.4 kg

DRUGS (2)
  1. DABRAFENIB [Suspect]
     Active Substance: DABRAFENIB
     Indication: COLON CANCER
     Dosage: 150 MG, BID
     Route: 048
     Dates: start: 20191105, end: 20200501
  2. TRAMETINIB [Suspect]
     Active Substance: TRAMETINIB
     Indication: COLON CANCER
     Dosage: 2 MG, QD
     Route: 048
     Dates: start: 20191105, end: 20200501

REACTIONS (6)
  - Axonal neuropathy [Recovering/Resolving]
  - Demyelinating polyneuropathy [Recovering/Resolving]
  - Guillain-Barre syndrome [Recovering/Resolving]
  - Death [Fatal]
  - Muscle strength abnormal [Unknown]
  - Neuropathy peripheral [Recovering/Resolving]

NARRATIVE: CASE EVENT DATE: 20200420
